FAERS Safety Report 10947564 (Version 1)
Quarter: 2015Q1

REPORT INFORMATION
  Report Type: Spontaneous
  Country: US (occurrence: None)
  Receive Date: 20150212
  Receipt Date: 20150212
  Transmission Date: 20150721
  Serious: No
  Sender: FDA-Public Use
  Company Number: TPA2011A05210

PATIENT
  Age: 62 Year
  Sex: Male
  Weight: 90.72 kg

DRUGS (4)
  1. ULORIC [Suspect]
     Active Substance: FEBUXOSTAT
     Indication: GOUT
     Route: 048
     Dates: start: 20110719
  2. NORVASC (AMLODIPINE) [Concomitant]
  3. BENICAR HCT (HYDROCHLOROTHIAZIDE, OLMESARTAN MEDOXOMIL) [Concomitant]
  4. COMBIGAN (TIMOLOL MALEATE, BRIMONIDINE TARTRATE) [Concomitant]

REACTIONS (2)
  - Eye irritation [None]
  - Ocular hyperaemia [None]
